FAERS Safety Report 7167959-3 (Version None)
Quarter: 2010Q4

REPORT INFORMATION
  Report Type: 
  Country: None (occurrence: None)
  Receive Date: 20101216
  Receipt Date: 20101207
  Transmission Date: 20110411
  Serious: Yes (Other)
  Sender: FDA-Public Use
  Company Number: US-PFIZER INC-2010166423

PATIENT
  Sex: Female
  Weight: 129.71 kg

DRUGS (5)
  1. GEODON [Suspect]
     Dosage: 20 MG, 2X/DAY
     Route: 048
  2. PAROXETINE [Concomitant]
     Dosage: 80 MG, 1X/DAY
     Route: 048
  3. LEVOTHYROXINE [Concomitant]
     Indication: HYPOTHYROIDISM
     Dosage: 75 UG, UNK
     Route: 048
  4. PREMARIN [Concomitant]
     Dosage: 0.625 MG, 1X/DAY
  5. MEDROXYPROGESTERONE [Concomitant]
     Dosage: 10 MG, THE FIRST 12 DAYS OF EACH MONTH

REACTIONS (1)
  - BLOOD PROLACTIN INCREASED [None]
